FAERS Safety Report 25529938 (Version 2)
Quarter: 2025Q3

REPORT INFORMATION
  Report Type: Spontaneous
  Country: US (occurrence: US)
  Receive Date: 20250708
  Receipt Date: 20250717
  Transmission Date: 20251021
  Serious: Yes (Hospitalization)
  Sender: TEVA
  Company Number: US-TEVA-VS-3347986

PATIENT
  Age: 32 Year
  Sex: Male

DRUGS (2)
  1. RISPERIDONE [Interacting]
     Active Substance: RISPERIDONE
     Indication: Antipsychotic therapy
     Route: 065
  2. CARIPRAZINE [Interacting]
     Active Substance: CARIPRAZINE
     Indication: Antipsychotic therapy
     Route: 065

REACTIONS (3)
  - Drug-disease interaction [Unknown]
  - Drug interaction [Unknown]
  - Neuroleptic malignant syndrome [Recovered/Resolved]
